FAERS Safety Report 8626466 (Version 4)
Quarter: 2012Q4

REPORT INFORMATION
  Report Type: Spontaneous
  Country: US (occurrence: None)
  Receive Date: 20120606
  Receipt Date: 20120823
  Transmission Date: 20130627
  Serious: Yes (Congenital Anomaly)
  Sender: FDA-Public Use
  Company Number: ADR-UNK-058

PATIENT
  Age: 1 Day
  Sex: Female
  Weight: 2.3 kg

DRUGS (6)
  1. EPIVIR HBV [Suspect]
     Indication: ACQUIRED IMMUNODEFICIENCY SYNDROME
     Dosage: 1 COURSE 300MG/DAY ORAL
     Route: 048
     Dates: start: 20021025
  2. DIDANOSINE (VIDEX, VIDEX EC, DDI) [Concomitant]
  3. INDINAVIR (CRIXIVAN, IDV) [Concomitant]
  4. RITONAVIR (NORVIRO, RTV) [Concomitant]
  5. LOPINAVIR+RITONAVIR (KALETRA, ALUVIA, LPV/R) [Concomitant]
  6. ZIDOVUDINE GENERIC-AUROBINDO) [Concomitant]

REACTIONS (3)
  - MATERNAL DRUGS AFFECTING FOETUS [None]
  - POLYDACTYLY [None]
  - CLEFT LIP [None]
